FAERS Safety Report 7985680-6 (Version None)
Quarter: 2011Q4

REPORT INFORMATION
  Report Type: 
  Country: None (occurrence: None)
  Receive Date: 20111216
  Receipt Date: 20111214
  Transmission Date: 20120403
  Serious: Yes (Death)
  Sender: FDA-Public Use
  Company Number: BR-ABBOTT-11P-020-0882033-00

PATIENT
  Sex: Female
  Weight: 67 kg

DRUGS (5)
  1. GALENIC FORMULATION [Concomitant]
     Indication: PAIN
     Dosage: 1-2 TABLETS A DAY
  2. HUMIRA [Suspect]
     Indication: RHEUMATOID ARTHRITIS
     Dates: start: 20110201
  3. LOSARTAN POTASSIUM [Concomitant]
     Indication: BLOOD PRESSURE MANAGEMENT
  4. OMEPRAZOLE [Concomitant]
     Indication: PROPHYLAXIS
  5. OMEPRAZOLE [Concomitant]
     Indication: GASTRIC DISORDER

REACTIONS (3)
  - ACUTE MYOCARDIAL INFARCTION [None]
  - SKIN DISCOLOURATION [None]
  - PULMONARY INFARCTION [None]
